FAERS Safety Report 6682242-8 (Version None)
Quarter: 2010Q2

REPORT INFORMATION
  Report Type: 
  Country: None (occurrence: None)
  Receive Date: 20100415
  Receipt Date: 20100406
  Transmission Date: 20101027
  Serious: No
  Sender: FDA-Public Use
  Company Number: 2009BI017854

PATIENT
  Sex: Female

DRUGS (2)
  1. TYSABRI [Suspect]
     Indication: MULTIPLE SCLEROSIS
     Route: 042
     Dates: start: 20070302, end: 20090227
  2. TYSABRI [Suspect]
     Route: 042
     Dates: start: 20090424

REACTIONS (3)
  - ASTHENIA [None]
  - FATIGUE [None]
  - STRESS [None]
